FAERS Safety Report 5248002-X (Version None)
Quarter: 2007Q1

REPORT INFORMATION
  Report Type: 
  Country: None (occurrence: None)
  Receive Date: 20070227
  Receipt Date: 20070216
  Transmission Date: 20070707
  Serious: Yes (Death, Hospitalization)
  Sender: FDA-Public Use
  Company Number: US-BRISTOL-MYERS SQUIBB COMPANY-13684246

PATIENT
  Age: 8 Decade
  Sex: Female

DRUGS (6)
  1. MEGESTROL ACETATE [Suspect]
     Indication: INCREASED APPETITE
     Route: 048
     Dates: start: 20060501, end: 20060501
  2. REMERON [Concomitant]
  3. MARINOL [Concomitant]
  4. IRON [Concomitant]
  5. LASIX [Concomitant]
  6. COUMADIN [Concomitant]

REACTIONS (3)
  - DEATH [None]
  - DEEP VEIN THROMBOSIS [None]
  - PULMONARY EMBOLISM [None]
